FAERS Safety Report 23474725 (Version 1)
Quarter: 2024Q1

REPORT INFORMATION
  Report Type: Spontaneous
  Country: GB (occurrence: GB)
  Receive Date: 20240204
  Receipt Date: 20240204
  Transmission Date: 20240409
  Serious: Yes (Other)
  Sender: FDA-Public Use
  Company Number: GB-IPSEN Group, Research and Development-2023-09589

PATIENT
  Age: 66 Year
  Sex: Female
  Weight: 77.3 kg

DRUGS (3)
  1. CABOMETYX [Suspect]
     Active Substance: CABOZANTINIB S-MALATE
     Indication: Osteosarcoma
     Dosage: 60 MG, QD
     Route: 048
     Dates: start: 20230424
  2. GEMCITABINE [Concomitant]
     Active Substance: GEMCITABINE
     Dosage: UNK
  3. DOCETAXEL [Concomitant]
     Active Substance: DOCETAXEL\DOCETAXEL ANHYDROUS
     Dosage: UNK

REACTIONS (3)
  - Malignant neoplasm progression [Unknown]
  - Oropharyngeal pain [Recovered/Resolved]
  - Off label use [Unknown]
